FAERS Safety Report 16707385 (Version 1)
Quarter: 2019Q3

REPORT INFORMATION
  Report Type: Spontaneous
  Country: MX (occurrence: MX)
  Receive Date: 20190815
  Receipt Date: 20190815
  Transmission Date: 20191004
  Serious: Yes (Death)
  Sender: FDA-Public Use
  Company Number: MX-TAKEDA-2019TUS048158

PATIENT
  Age: 58 Year
  Sex: Male

DRUGS (1)
  1. TURAZIVE [Suspect]
     Active Substance: FEBUXOSTAT
     Indication: HYPERURICAEMIA
     Dosage: 80 MILLIGRAM, QD
     Route: 048
     Dates: start: 2018, end: 201811

REACTIONS (1)
  - Death [Fatal]
